FAERS Safety Report 6237205-3 (Version None)
Quarter: 2009Q2

REPORT INFORMATION
  Report Type: 
  Country: None (occurrence: None)
  Receive Date: 20090619
  Receipt Date: 20090611
  Transmission Date: 20091009
  Serious: Yes (Hospitalization)
  Sender: FDA-Public Use
  Company Number: US-BRISTOL-MYERS SQUIBB COMPANY-14422018

PATIENT
  Age: 77 Year
  Sex: Male
  Weight: 116 kg

DRUGS (15)
  1. CETUXIMAB [Suspect]
     Indication: PROSTATE CANCER METASTATIC
     Dosage: CHIMERIC ANTI-EGFR MAB. THERAPY START DATE 08AUG08,85.4286MG
     Route: 042
     Dates: start: 20080808, end: 20080813
  2. NOVANTRONE [Suspect]
     Indication: PROSTATE CANCER METASTATIC
     Dosage: 1.381MG
     Route: 042
     Dates: start: 20080808
  3. ZOLEDRONIC ACID [Concomitant]
     Indication: METASTASES TO BONE
     Route: 042
     Dates: start: 20071206
  4. MORPHINE [Concomitant]
     Indication: PAIN
     Route: 042
     Dates: start: 20080818, end: 20080820
  5. KYTRIL [Concomitant]
     Indication: NAUSEA
     Route: 042
     Dates: start: 20080820, end: 20080820
  6. ZYRTEC [Concomitant]
     Indication: RHINITIS ALLERGIC
     Route: 048
     Dates: start: 20060831
  7. PRESERVISION LUTEIN [Concomitant]
     Indication: VITAMIN SUPPLEMENTATION
     Dosage: 1 DOSAGEFORM = 1 TAB
     Route: 048
     Dates: start: 20060831
  8. DOCUSATE CALCIUM [Concomitant]
     Indication: CONSTIPATION PROPHYLAXIS
     Route: 048
     Dates: start: 20060831
  9. FLOMAX [Concomitant]
     Indication: POLLAKIURIA
     Route: 048
     Dates: start: 20010101
  10. CANASA [Concomitant]
     Indication: HAEMORRHOIDS
     Route: 054
     Dates: start: 20080403
  11. GUAIFENESIN + PSEUDOEPHEDRINE HCL [Concomitant]
     Indication: COUGH
     Dosage: GUAIFENESIN + PSEUDOEPHEDRINE HCL/HCOD
     Route: 048
     Dates: start: 20080516, end: 20080820
  12. COMPAZINE [Concomitant]
     Indication: PROPHYLAXIS OF NAUSEA AND VOMITING
     Route: 048
     Dates: start: 20080306
  13. XOPENEX [Concomitant]
     Indication: COUGH
     Dosage: 2 DOSAGEFORM = 2 INHALATION Q4-6H
     Route: 055
     Dates: start: 20080402, end: 20080820
  14. MS CONTIN [Concomitant]
     Indication: PAIN
     Route: 048
     Dates: start: 20080818
  15. NORCO [Concomitant]
     Indication: PAIN
     Dosage: Q4-6H
     Route: 048

REACTIONS (2)
  - ANAEMIA [None]
  - INFECTION [None]
